FAERS Safety Report 25762443 (Version 1)
Quarter: 2025Q3

REPORT INFORMATION
  Report Type: Spontaneous
  Country: EU (occurrence: EU)
  Receive Date: 20250904
  Receipt Date: 20250904
  Transmission Date: 20251020
  Serious: Yes (Disabling)
  Sender: MYLAN
  Company Number: None

PATIENT
  Age: 39 Year
  Sex: Female

DRUGS (8)
  1. PAROXETINE [Suspect]
     Active Substance: PAROXETINE
     Indication: Multiple sclerosis
     Dosage: 20 MILLIGRAM, QD
     Dates: start: 202411
  2. PAROXETINE [Suspect]
     Active Substance: PAROXETINE
     Dosage: 20 MILLIGRAM, QD
     Route: 048
     Dates: start: 202411
  3. PAROXETINE [Suspect]
     Active Substance: PAROXETINE
     Dosage: 20 MILLIGRAM, QD
     Route: 048
     Dates: start: 202411
  4. PAROXETINE [Suspect]
     Active Substance: PAROXETINE
     Dosage: 20 MILLIGRAM, QD
     Dates: start: 202411
  5. KESIMPTA [Suspect]
     Active Substance: OFATUMUMAB
     Indication: Multiple sclerosis
     Dates: start: 20241223
  6. KESIMPTA [Suspect]
     Active Substance: OFATUMUMAB
     Route: 058
     Dates: start: 20241223
  7. KESIMPTA [Suspect]
     Active Substance: OFATUMUMAB
     Route: 058
     Dates: start: 20241223
  8. KESIMPTA [Suspect]
     Active Substance: OFATUMUMAB
     Dates: start: 20241223

REACTIONS (2)
  - Tongue geographic [Not Recovered/Not Resolved]
  - Skin fissures [Not Recovered/Not Resolved]

NARRATIVE: CASE EVENT DATE: 20241201
